FAERS Safety Report 5510583-6 (Version None)
Quarter: 2007Q4

REPORT INFORMATION
  Report Type: 
  Country: None (occurrence: None)
  Receive Date: 20071108
  Receipt Date: 20071101
  Transmission Date: 20080405
  Serious: Yes (Hospitalization, Other)
  Sender: FDA-Public Use
  Company Number: US-ELI_LILLY_AND_COMPANY-US200711000524

PATIENT
  Sex: Female

DRUGS (3)
  1. BYETTA [Suspect]
     Dosage: 5 UG, 2/D
     Route: 058
     Dates: start: 20070101
  2. NOVOLOG MIX 70/30 [Concomitant]
     Indication: DIABETES MELLITUS
     Dosage: UNK, 2/D
  3. ALL OTHER THERAPEUTIC PRODUCTS [Concomitant]
     Dosage: UNK, UNKNOWN

REACTIONS (4)
  - ASTHENIA [None]
  - BLINDNESS TRANSIENT [None]
  - BLOOD GLUCOSE INCREASED [None]
  - HYPERTENSION [None]
